FAERS Safety Report 11553388 (Version 1)
Quarter: 2015Q3

REPORT INFORMATION
  Report Type: Spontaneous
  Country: AR (occurrence: AR)
  Receive Date: 20150925
  Receipt Date: 20150925
  Transmission Date: 20151125
  Serious: Yes (Other)
  Sender: FDA-Public Use
  Company Number: AR-AMGEN-ARGSP2015080507

PATIENT
  Age: 65 Year
  Sex: Female

DRUGS (6)
  1. AMPLIAR [Concomitant]
     Dosage: UNK
     Dates: start: 2014
  2. LOSACOR [Concomitant]
     Active Substance: LOSARTAN POTASSIUM
     Dosage: UNK
     Dates: start: 20150901
  3. ENBREL [Suspect]
     Active Substance: ETANERCEPT
     Indication: RHEUMATOID ARTHRITIS
     Dosage: 50 MG, WEEKLY
     Route: 065
     Dates: start: 20000504
  4. ATLANSIL                           /00133101/ [Concomitant]
     Dosage: UNK
     Dates: start: 2014
  5. NABILA [Concomitant]
     Dosage: UNK
     Dates: start: 2014
  6. METHOTREXATE [Concomitant]
     Active Substance: METHOTREXATE
     Dosage: UNK
     Dates: start: 2000

REACTIONS (9)
  - Pain [Recovering/Resolving]
  - Osteoarthritis [Unknown]
  - Drug ineffective [Not Recovered/Not Resolved]
  - Deformity [Not Recovered/Not Resolved]
  - Cardiac failure [Not Recovered/Not Resolved]
  - Gastritis [Not Recovered/Not Resolved]
  - Malaise [Recovering/Resolving]
  - Fall [Recovered/Resolved]
  - Feeling abnormal [Not Recovered/Not Resolved]

NARRATIVE: CASE EVENT DATE: 2007
